FAERS Safety Report 10185901 (Version 2)
Quarter: 2014Q2

REPORT INFORMATION
  Report Type: Report from Study
  Country: US (occurrence: US)
  Receive Date: 20140521
  Receipt Date: 20140521
  Transmission Date: 20141212
  Serious: Yes (Other)
  Sender: FDA-Public Use
  Company Number: US-TEVA-477603USA

PATIENT
  Sex: Female

DRUGS (3)
  1. CLARAVIS [Suspect]
  2. METFORMIN [Concomitant]
  3. MONONESSA [Concomitant]

REACTIONS (1)
  - Thrombosis [Unknown]
